FAERS Safety Report 24448831 (Version 2)
Quarter: 2024Q4

REPORT INFORMATION
  Report Type: Spontaneous
  Country: JP (occurrence: JP)
  Receive Date: 20241017
  Receipt Date: 20241119
  Transmission Date: 20250115
  Serious: No
  Sender: AMGEN
  Company Number: JP-KISSEI-TV20240836_P_1

PATIENT
  Age: 69 Year
  Sex: Male

DRUGS (2)
  1. TAVNEOS [Suspect]
     Active Substance: AVACOPAN
     Indication: Microscopic polyangiitis
     Dosage: 30 MILLIGRAM, Q12H
     Route: 048
  2. RITUXIMAB [Concomitant]
     Active Substance: RITUXIMAB
     Indication: Microscopic polyangiitis
     Dosage: UNK
     Route: 040

REACTIONS (1)
  - COVID-19 [Unknown]
